FAERS Safety Report 12622089 (Version 1)
Quarter: 2016Q3

REPORT INFORMATION
  Report Type: Spontaneous
  Country: US (occurrence: US)
  Receive Date: 20160804
  Receipt Date: 20160804
  Transmission Date: 20161109
  Serious: No
  Sender: FDA-Public Use
  Company Number: US-ANACOR-2016ANA00170

PATIENT
  Sex: Female
  Weight: 66.21 kg

DRUGS (1)
  1. KERYDIN [Suspect]
     Active Substance: TAVABOROLE
     Indication: ONYCHOMYCOSIS
     Dosage: 2 GTT, 1X/DAY
     Route: 061
     Dates: start: 20160310

REACTIONS (1)
  - Application site dermatitis [Unknown]

NARRATIVE: CASE EVENT DATE: 2016
